FAERS Safety Report 8769731 (Version 1)
Quarter: 2012Q4

REPORT INFORMATION
  Report Type: 
  Country: US (occurrence: US)
  Receive Date: 20120905
  Receipt Date: 20120905
  Transmission Date: 20130627
  Serious: Yes (Other)
  Sender: FDA-Public Use
  Company Number: US-JNJFOC-20120814741

PATIENT
  Age: 60 Year
  Sex: Female
  Weight: 129.28 kg

DRUGS (7)
  1. BENADRYL ALLERGY ULTRATAB [Suspect]
     Indication: LACRIMATION INCREASED
     Route: 048
     Dates: start: 20120826
  2. BENADRYL ALLERGY ULTRATAB [Suspect]
     Indication: EYE PRURITUS
     Route: 048
     Dates: start: 20120826
  3. HCTZ [Concomitant]
     Indication: HYPERTENSION
     Route: 065
  4. NEXIUM [Concomitant]
     Indication: GASTROOESOPHAGEAL REFLUX DISEASE
     Route: 065
  5. MELOXICAM [Concomitant]
     Indication: PAIN
     Route: 065
  6. LISINOPRIL [Concomitant]
     Indication: HYPERTENSION
     Route: 065
  7. ZOCOR [Concomitant]
     Indication: BLOOD CHOLESTEROL
     Route: 065

REACTIONS (2)
  - Ocular hyperaemia [Not Recovered/Not Resolved]
  - Thrombosis [Not Recovered/Not Resolved]
